FAERS Safety Report 5848381-6 (Version None)
Quarter: 2008Q3

REPORT INFORMATION
  Report Type: 
  Country: None (occurrence: None)
  Receive Date: 20080818
  Receipt Date: 20080812
  Transmission Date: 20090109
  Serious: Yes (Death, Other)
  Sender: FDA-Public Use
  Company Number: US-PURDUE-USA_2008_0034406

PATIENT
  Age: 17 Year
  Sex: Male
  Weight: 95 kg

DRUGS (2)
  1. OXYCODONE HCL [Suspect]
     Indication: DRUG ABUSE
     Dosage: UNK MG, UNK
     Route: 048
  2. TETRAHYDROCANNABINOL [Suspect]
     Indication: DRUG ABUSE
     Dosage: UNK MG, UNK

REACTIONS (4)
  - AGGRESSION [None]
  - ELECTRIC SHOCK [None]
  - GUN SHOT WOUND [None]
  - SUBSTANCE ABUSE [None]
